FAERS Safety Report 22043528 (Version 2)
Quarter: 2023Q1

REPORT INFORMATION
  Report Type: Report from Study
  Country: IT (occurrence: IT)
  Receive Date: 20230228
  Receipt Date: 20230326
  Transmission Date: 20230418
  Serious: Yes (Hospitalization)
  Sender: FDA-Public Use
  Company Number: IT-JNJFOC-20230246923

PATIENT

DRUGS (4)
  1. SIMPONI [Suspect]
     Active Substance: GOLIMUMAB
     Indication: Rheumatoid arthritis
     Route: 058
  2. ADALIMUMAB [Suspect]
     Active Substance: ADALIMUMAB
  3. CERTOLIZUMAB [Suspect]
     Active Substance: CERTOLIZUMAB
  4. ETANERCEPT [Suspect]
     Active Substance: ETANERCEPT

REACTIONS (5)
  - Adverse event [Unknown]
  - Infection [Unknown]
  - Drug intolerance [Unknown]
  - Drug ineffective [Unknown]
  - Drug ineffective [Unknown]
